FAERS Safety Report 10314392 (Version 1)
Quarter: 2014Q3

REPORT INFORMATION
  Report Type: Spontaneous
  Country: IT (occurrence: IT)
  Receive Date: 20140718
  Receipt Date: 20140718
  Transmission Date: 20150326
  Serious: Yes (Other)
  Sender: FDA-Public Use
  Company Number: IT-TEVA-494078ISR

PATIENT
  Age: 45 Year
  Sex: Female
  Weight: 43 kg

DRUGS (4)
  1. CALCIO LEVOFOLINATO TEVA [Suspect]
     Active Substance: LEUCOVORIN CALCIUM
     Indication: METASTASES TO LIVER
     Dosage: 270 MILLIGRAM DAILY;
     Route: 041
     Dates: start: 20140528, end: 20140709
  2. AVASTIN [Concomitant]
     Active Substance: BEVACIZUMAB
     Indication: METASTASES TO LIVER
     Dosage: 215 MILLIGRAM DAILY;
     Route: 041
     Dates: start: 20140528, end: 20140709
  3. FLUOROURACILE TEVA [Suspect]
     Active Substance: FLUOROURACIL
     Indication: METASTASES TO LIVER
     Dosage: 2700 MILLIGRAM DAILY;
     Route: 041
     Dates: start: 20140528, end: 20140709
  4. IRINOTECAN KABI 20MG/ML [Suspect]
     Active Substance: IRINOTECAN
     Indication: METASTASES TO LIVER
     Dosage: 245 MILLIGRAM DAILY;
     Route: 041
     Dates: start: 20140528, end: 20140709

REACTIONS (2)
  - Toxicity to various agents [None]
  - Neutropenia [Recovered/Resolved]

NARRATIVE: CASE EVENT DATE: 20140616
